FAERS Safety Report 6778130-9 (Version None)
Quarter: 2010Q2

REPORT INFORMATION
  Report Type: 
  Country: None (occurrence: None)
  Receive Date: 20100618
  Receipt Date: 20100608
  Transmission Date: 20101027
  Serious: No
  Sender: FDA-Public Use
  Company Number: 2009BI027951

PATIENT
  Sex: Female

DRUGS (1)
  1. TYSABRI [Suspect]
     Indication: MULTIPLE SCLEROSIS
     Route: 042
     Dates: start: 20090708

REACTIONS (10)
  - ABDOMINAL DISTENSION [None]
  - BURNING SENSATION [None]
  - DRUG INEFFECTIVE [None]
  - FORMICATION [None]
  - HAIR DISORDER [None]
  - PAIN [None]
  - POLLAKIURIA [None]
  - SKIN DISCOLOURATION [None]
  - TREMOR [None]
  - WEIGHT DECREASED [None]
